FAERS Safety Report 18257617 (Version 1)
Quarter: 2020Q3

REPORT INFORMATION
  Report Type: Spontaneous
  Country: US (occurrence: US)
  Receive Date: 20200911
  Receipt Date: 20200911
  Transmission Date: 20201103
  Serious: No
  Sender: FDA-Public Use
  Company Number: US-ASTRAZENECA-2020SF15373

PATIENT
  Age: 749 Month
  Sex: Male
  Weight: 65.8 kg

DRUGS (7)
  1. GLUCOSIMINE CHONDROITIN [Concomitant]
     Route: 048
  2. GREEN TEA EXTRACT [Concomitant]
     Route: 048
     Dates: start: 202008
  3. CALCIUM [Concomitant]
     Active Substance: CALCIUM
     Route: 048
  4. CALQUENCE [Suspect]
     Active Substance: ACALABRUTINIB
     Indication: CHRONIC LYMPHOCYTIC LEUKAEMIA
     Route: 048
     Dates: start: 20200819
  5. MAGNESIUM CITRATE. [Concomitant]
     Active Substance: MAGNESIUM CITRATE
     Route: 048
  6. POTASIUM [Concomitant]
     Route: 048
  7. FISH OIL [Concomitant]
     Active Substance: FISH OIL
     Route: 048

REACTIONS (5)
  - Benign prostatic hyperplasia [Unknown]
  - Insomnia [Unknown]
  - Headache [Unknown]
  - Restless legs syndrome [Unknown]
  - Flushing [Unknown]

NARRATIVE: CASE EVENT DATE: 202008
